FAERS Safety Report 13630584 (Version 1)
Quarter: 2017Q2

REPORT INFORMATION
  Report Type: Spontaneous
  Country: US (occurrence: US)
  Receive Date: 20170531
  Receipt Date: 20170531
  Transmission Date: 20170830
  Serious: No
  Sender: FDA-Public Use
  Company Number: US-ASTELLAS-1312913

PATIENT
  Sex: Female

DRUGS (14)
  1. TRIAMTERENE. [Concomitant]
     Active Substance: TRIAMTERENE
  2. VICODIN [Concomitant]
     Active Substance: ACETAMINOPHEN\HYDROCODONE BITARTRATE
  3. KLOR-CON [Concomitant]
     Active Substance: POTASSIUM CHLORIDE
  4. PLAVIX [Concomitant]
     Active Substance: CLOPIDOGREL BISULFATE
  5. LOVASTATIN. [Concomitant]
     Active Substance: LOVASTATIN
  6. PROCHLORPERAZINE. [Concomitant]
     Active Substance: PROCHLORPERAZINE
  7. LOSARTAN. [Concomitant]
     Active Substance: LOSARTAN
  8. HCTZ [Concomitant]
     Active Substance: HYDROCHLOROTHIAZIDE
  9. TARCEVA [Suspect]
     Active Substance: ERLOTINIB HYDROCHLORIDE
     Route: 048
     Dates: start: 20100806
  10. RANITIDINE. [Concomitant]
     Active Substance: RANITIDINE
  11. FENTANYL TRANSDERMAL SYSTEM [Concomitant]
     Active Substance: FENTANYL
  12. XANAX [Concomitant]
     Active Substance: ALPRAZOLAM
  13. GLIPIZIDE. [Concomitant]
     Active Substance: GLIPIZIDE
  14. TARCEVA [Suspect]
     Active Substance: ERLOTINIB HYDROCHLORIDE
     Indication: LUNG NEOPLASM MALIGNANT
     Route: 048
     Dates: start: 20120918, end: 20131127

REACTIONS (1)
  - Rash [Unknown]
